FAERS Safety Report 5162028-6 (Version None)
Quarter: 2006Q4

REPORT INFORMATION
  Report Type: 
  Country: None (occurrence: None)
  Receive Date: 20061121
  Receipt Date: 20061114
  Transmission Date: 20070319
  Serious: No
  Sender: FDA-Public Use
  Company Number: TAP2006Q01888

PATIENT
  Age: 63 Year
  Sex: Male

DRUGS (8)
  1. LUPRON DEPOT-3 [Suspect]
     Indication: PROSTATE CANCER
     Dosage: 30 MG, 1 IN 4 M, INTRAMUSCULAR
     Route: 030
     Dates: start: 20051109
  2. ATACAND HCT [Concomitant]
  3. PLAVIX [Concomitant]
  4. LIPITOR [Concomitant]
  5. NORVASC [Concomitant]
  6. ASAPHEN (ACETYLSALICYLIC ACID) [Concomitant]
  7. RHOXAL-BISOPROLOL (BISOPROLOL FUMARATE) [Concomitant]
  8. FLOMAX (MORNIFLUMATE) [Concomitant]

REACTIONS (7)
  - BONE PAIN [None]
  - CHEST PAIN [None]
  - DYSPNOEA [None]
  - FATIGUE [None]
  - HOT FLUSH [None]
  - HYPOAESTHESIA [None]
  - TESTICULAR DISORDER [None]
